FAERS Safety Report 18318810 (Version 1)
Quarter: 2020Q3

REPORT INFORMATION
  Report Type: Spontaneous
  Country: US (occurrence: US)
  Receive Date: 20200924
  Receipt Date: 20200924
  Transmission Date: 20201103
  Serious: Yes (Other)
  Sender: FDA-Public Use
  Company Number: None

PATIENT
  Sex: Female
  Weight: 63 kg

DRUGS (3)
  1. VIT D [Concomitant]
     Active Substance: VITAMIN D NOS
  2. PROBIOTIC [Suspect]
     Active Substance: PROBIOTICS NOS
  3. DIPHENHYDRAMINE. [Suspect]
     Active Substance: DIPHENHYDRAMINE
     Indication: URINARY RETENTION

REACTIONS (5)
  - Rash [None]
  - Urinary retention [None]
  - Rash pruritic [None]
  - Pruritus [None]
  - Adverse food reaction [None]
